FAERS Safety Report 20069776 (Version 3)
Quarter: 2024Q2

REPORT INFORMATION
  Report Type: Spontaneous
  Country: US (occurrence: US)
  Receive Date: 20211115
  Receipt Date: 20240502
  Transmission Date: 20240716
  Serious: Yes (Life-Threatening, Other)
  Sender: FDA-Public Use
  Company Number: US-BRISTOL-MYERS SQUIBB COMPANY-BMS-2021-121022

PATIENT
  Age: 82 Year
  Sex: Female

DRUGS (2)
  1. APIXABAN [Suspect]
     Active Substance: APIXABAN
     Indication: Atrial fibrillation
     Route: 048
  2. CLOPIDOGREL BISULFATE [Suspect]
     Active Substance: CLOPIDOGREL BISULFATE
     Indication: Transient ischaemic attack
     Route: 048

REACTIONS (6)
  - Haemoperitoneum [Unknown]
  - Haemangioma of spleen [Unknown]
  - Hypotension [Unknown]
  - Haemoglobin decreased [Unknown]
  - Splenic rupture [Unknown]
  - Splenic haematoma [Unknown]
